FAERS Safety Report 5089890-X (Version None)
Quarter: 2006Q3

REPORT INFORMATION
  Report Type: 
  Country: None (occurrence: None)
  Receive Date: 20060727
  Receipt Date: 20060523
  Transmission Date: 20061208
  Serious: Yes (Other)
  Sender: FDA-Public Use
  Company Number: 2006068359

PATIENT
  Age: 45 Year
  Sex: Female
  Weight: 59.8748 kg

DRUGS (1)
  1. LYRICA [Suspect]
     Indication: FIBROMYALGIA
     Dosage: 75 MG (75 MG, 1 IN 1 D), UNKNOWN
     Route: 065
     Dates: start: 20060522

REACTIONS (6)
  - DIZZINESS [None]
  - DYSGRAPHIA [None]
  - FEELING DRUNK [None]
  - MALAISE [None]
  - MOBILITY DECREASED [None]
  - SPEECH DISORDER [None]
